FAERS Safety Report 7989191-3 (Version None)
Quarter: 2011Q4

REPORT INFORMATION
  Report Type: 
  Country: None (occurrence: None)
  Receive Date: 20111219
  Receipt Date: 20111212
  Transmission Date: 20120403
  Serious: Yes (Other)
  Sender: FDA-Public Use
  Company Number: US-JNJFOC-20111205379

PATIENT
  Age: 58 Year
  Sex: Male

DRUGS (2)
  1. DOXORUBICIN HCL [Suspect]
     Indication: LIPOSARCOMA
     Route: 042
     Dates: start: 20070101
  2. DOXORUBICIN HCL [Suspect]
     Route: 042
     Dates: start: 20110101

REACTIONS (1)
  - BLOOD CREATININE INCREASED [None]
